FAERS Safety Report 7500635-3 (Version None)
Quarter: 2011Q2

REPORT INFORMATION
  Report Type: 
  Country: None (occurrence: None)
  Receive Date: 20110524
  Receipt Date: 20110518
  Transmission Date: 20111010
  Serious: Yes (Death, Life-Threatening, Hospitalization)
  Sender: FDA-Public Use
  Company Number: ES-AMGEN-ESPNI2011023711

PATIENT
  Age: 60 Year
  Sex: Male

DRUGS (5)
  1. LENALIDOMIDE [Concomitant]
     Dosage: 25 MG, QD
     Route: 048
     Dates: start: 20110501, end: 20110506
  2. DEXAMETHASONE [Concomitant]
     Dosage: 40 MG, QWK
  3. SULFAMETHOXAZOLE AND TRIMETHOPRIM [Concomitant]
     Dosage: UNK UNK, 3 TIMES/WK
  4. FILGRASTIM [Suspect]
     Indication: MULTIPLE MYELOMA
     Dosage: 30 MG, QD
     Route: 058
     Dates: start: 20110507, end: 20110509
  5. CEFUROXIME [Concomitant]

REACTIONS (4)
  - NEUTROPENIA [None]
  - ANAEMIA [None]
  - SEPTIC SHOCK [None]
  - THROMBOCYTOPENIA [None]
